FAERS Safety Report 5460080-1 (Version None)
Quarter: 2007Q3

REPORT INFORMATION
  Report Type: 
  Country: None (occurrence: None)
  Receive Date: 20070919
  Receipt Date: 20070507
  Transmission Date: 20080115
  Serious: No
  Sender: FDA-Public Use
  Company Number: US-ASTRAZENECA-2007UW10878

PATIENT
  Age: 42 Year
  Sex: Female
  Weight: 83.6 kg

DRUGS (7)
  1. SEROQUEL [Suspect]
     Indication: ANXIETY
     Route: 048
     Dates: start: 20020101, end: 20040101
  2. SEROQUEL [Suspect]
     Indication: DEPRESSION
     Route: 048
     Dates: start: 20020101, end: 20040101
  3. SEROQUEL [Suspect]
     Dosage: FACT SHEET STATED STOPPING SEROQUEL DUE TO DIABETES IN 2004
     Route: 048
     Dates: start: 20030101
  4. SEROQUEL [Suspect]
     Dosage: FACT SHEET STATED STOPPING SEROQUEL DUE TO DIABETES IN 2004
     Route: 048
     Dates: start: 20030101
  5. CLOZARIL [Concomitant]
  6. ZYPREXA [Concomitant]
  7. RISPERDAL [Concomitant]

REACTIONS (2)
  - DIABETES MELLITUS [None]
  - OBESITY [None]
